FAERS Safety Report 5255360-9 (Version None)
Quarter: 2007Q1

REPORT INFORMATION
  Report Type: 
  Country: None (occurrence: None)
  Receive Date: 20070305
  Receipt Date: 20070228
  Transmission Date: 20070707
  Serious: Yes (Death, Hospitalization)
  Sender: FDA-Public Use
  Company Number: PHEH2006US13139

PATIENT
  Age: 84 Year
  Sex: Male
  Weight: 86.167 kg

DRUGS (12)
  1. FORADIL [Suspect]
     Indication: CHRONIC OBSTRUCTIVE PULMONARY DISEASE
     Dosage: 1 CAP BID
     Dates: end: 20060919
  2. PROTONIX [Concomitant]
  3. LANTUS [Concomitant]
  4. DULCOLAX [Concomitant]
  5. FLAGYL [Concomitant]
  6. PLAVIX [Concomitant]
  7. ASPIRIN [Concomitant]
  8. ALBUTEROL [Concomitant]
  9. SENNA [Concomitant]
  10. BRIMONIDINE TARTRATE [Concomitant]
  11. BETAXOLOL [Concomitant]
  12. LISPRO [Concomitant]

REACTIONS (5)
  - DISEASE PROGRESSION [None]
  - ILEUS [None]
  - MYOCARDIAL INFARCTION [None]
  - RENAL FAILURE ACUTE [None]
  - SEPSIS [None]
